FAERS Safety Report 6013255-7 (Version None)
Quarter: 2008Q4

REPORT INFORMATION
  Report Type: 
  Country: None (occurrence: None)
  Receive Date: 20081219
  Receipt Date: 20081208
  Transmission Date: 20090506
  Serious: Yes (Hospitalization)
  Sender: FDA-Public Use
  Company Number: CA-ROCHE-601424

PATIENT
  Sex: Female

DRUGS (5)
  1. PEG-INTERFERON ALFA 2A (RO 25-8310) [Suspect]
     Route: 058
     Dates: start: 20070724
  2. RIBAVIRIN [Suspect]
     Route: 048
     Dates: start: 20070724
  3. LEVOTHYROXINE SODIUM [Concomitant]
  4. VALSARTAN [Concomitant]
  5. LORAZEPAM [Concomitant]

REACTIONS (3)
  - DEEP VEIN THROMBOSIS [None]
  - HYPERURICAEMIA [None]
  - MYOFASCITIS [None]
